FAERS Safety Report 5120429-6 (Version None)
Quarter: 2006Q3

REPORT INFORMATION
  Report Type: 
  Country: None (occurrence: None)
  Receive Date: 20060928
  Receipt Date: 20060920
  Transmission Date: 20061208
  Serious: Yes (Death)
  Sender: FDA-Public Use
  Company Number: 2006-147723-NL

PATIENT
  Age: 36 Year
  Sex: Male

DRUGS (4)
  1. MIRTAZAPINE [Suspect]
     Dosage: DF
  2. ALPRAZOLAM [Suspect]
     Dosage: DF
  3. TEMAZEPAM [Suspect]
     Dosage: DF
  4. ALCOHOL [Suspect]
     Dosage: DF

REACTIONS (1)
  - DRUG TOXICITY [None]
